FAERS Safety Report 8210218-8 (Version None)
Quarter: 2012Q1

REPORT INFORMATION
  Report Type: 
  Country: None (occurrence: None)
  Receive Date: 20120314
  Receipt Date: 20120309
  Transmission Date: 20120608
  Serious: Yes (Hospitalization, Other)
  Sender: FDA-Public Use
  Company Number: JP-ROCHE-786354

PATIENT
  Sex: Female
  Weight: 50 kg

DRUGS (12)
  1. AVASTIN [Suspect]
     Indication: LARGE INTESTINE CARCINOMA
     Dosage: DOSE FORM: INJECTION
     Route: 041
     Dates: start: 20091030, end: 20100305
  2. XELODA [Suspect]
     Indication: RECTAL CANCER RECURRENT
     Dosage: DOSAGE IS UNCERTAIN.
     Route: 048
     Dates: start: 20091030, end: 20100305
  3. IRINOTECAN HCL [Concomitant]
     Route: 041
     Dates: start: 20110426, end: 20110620
  4. LEVOLEUCOVORIN CALCIUM [Concomitant]
     Dosage: DOSE FORM: INJECTION
     Route: 041
     Dates: start: 20110426, end: 20110620
  5. ANTIHYPERTENSIVE AGENTS [Concomitant]
     Dosage: UNCERTAINTY
  6. LENDORMIN D [Concomitant]
     Route: 048
  7. POSTERISAN [Concomitant]
     Route: 058
     Dates: start: 19910524
  8. OXALIPLATIN [Concomitant]
     Indication: RECTAL CANCER RECURRENT
     Route: 041
     Dates: start: 20091030, end: 20100305
  9. FLUOROURACIL [Suspect]
     Route: 040
     Dates: start: 20110426, end: 20110622
  10. FLUOROURACIL [Suspect]
     Indication: RECTAL CANCER RECURRENT
     Dosage: DOSE INTERRUPTED
     Route: 040
     Dates: start: 20110426, end: 20110620
  11. AVASTIN [Suspect]
     Dosage: DOSE INTERRUPTED
     Route: 041
     Dates: start: 20110426, end: 20110620
  12. MAGNESIUM OXIDE + POTASSIUM HYDROXIDE [Concomitant]
     Route: 048

REACTIONS (10)
  - NYSTAGMUS [None]
  - DYSKINESIA [None]
  - LUNG CANCER METASTATIC [None]
  - NAUSEA [None]
  - STUPOR [None]
  - HYPOAESTHESIA [None]
  - HYPERTENSION [None]
  - POSTERIOR REVERSIBLE ENCEPHALOPATHY SYNDROME [None]
  - ROAD TRAFFIC ACCIDENT [None]
  - HAEMORRHOIDS [None]
